FAERS Safety Report 15144545 (Version 1)
Quarter: 2018Q3

REPORT INFORMATION
  Report Type: Report from Study
  Country: IT (occurrence: IT)
  Receive Date: 20180713
  Receipt Date: 20180713
  Transmission Date: 20181010
  Serious: Yes (Other)
  Sender: FDA-Public Use
  Company Number: IT-MYLANLABS-2018M1050782

PATIENT
  Age: 45 Year
  Sex: Female

DRUGS (1)
  1. FROBEN [Suspect]
     Active Substance: FLURBIPROFEN
     Indication: ANTIINFLAMMATORY THERAPY
     Dosage: 3 DF, UNK
     Route: 048
     Dates: start: 20180325, end: 20180326

REACTIONS (7)
  - Erythema [Recovering/Resolving]
  - Salivary hypersecretion [Recovering/Resolving]
  - Macroglossia [Recovering/Resolving]
  - Abdominal distension [Recovering/Resolving]
  - Malaise [Recovering/Resolving]
  - Dyspnoea [Recovering/Resolving]
  - Nausea [Recovering/Resolving]

NARRATIVE: CASE EVENT DATE: 20180325
